FAERS Safety Report 8978071 (Version 4)
Quarter: 2014Q1

REPORT INFORMATION
  Report Type: Spontaneous
  Country: US (occurrence: US)
  Receive Date: 20121220
  Receipt Date: 20140310
  Transmission Date: 20141002
  Serious: Yes (Hospitalization, Other)
  Sender: FDA-Public Use
  Company Number: US-B.I. PHARMACEUTICALS,INC./RIDGEFIELD-2012-BI-03528BP

PATIENT
  Age: 86 Year
  Sex: Female

DRUGS (12)
  1. SPIRIVA [Suspect]
     Indication: CHRONIC OBSTRUCTIVE PULMONARY DISEASE
     Dosage: 18 MCG
     Route: 055
     Dates: start: 2009
  2. SINGULAIR [Concomitant]
     Route: 048
  3. ALBUTEROL [Concomitant]
     Route: 055
  4. MELATONIN [Concomitant]
     Dosage: 3 MG
     Route: 065
  5. ASPIRIN [Concomitant]
     Dosage: 325 MG
     Route: 065
  6. THYROID [Concomitant]
     Dosage: 60 MG
     Route: 065
  7. ZYTEC [Concomitant]
     Dosage: 10 MG
     Route: 065
  8. BENZONATATE [Concomitant]
     Dosage: 360 MG
     Route: 065
  9. BIOTIN [Concomitant]
     Dosage: 3 MG
     Route: 065
  10. MULTI VITAMINS [Concomitant]
     Route: 065
  11. VITAMIN D3 [Concomitant]
     Dosage: 3000 U
     Route: 065
  12. VITAMIN C [Concomitant]
     Dosage: 1500 MG
     Route: 065

REACTIONS (5)
  - Pneumonia [Recovered/Resolved]
  - Sinusitis [Recovered/Resolved]
  - Dyspnoea [Recovered/Resolved]
  - Bronchitis [Recovered/Resolved]
  - Lung neoplasm malignant [Not Recovered/Not Resolved]
